FAERS Safety Report 14201796 (Version 2)
Quarter: 2018Q1

REPORT INFORMATION
  Report Type: Report from Study
  Country: US (occurrence: US)
  Receive Date: 20171117
  Receipt Date: 20180110
  Transmission Date: 20180508
  Serious: Yes (Other)
  Sender: FDA-Public Use
  Company Number: US-009507513-1711USA006054

PATIENT
  Sex: Male

DRUGS (3)
  1. JANUVIA [Suspect]
     Active Substance: SITAGLIPTIN PHOSPHATE
     Indication: DIABETES MELLITUS
     Dosage: 50 MG, QD
     Route: 048
  2. ACTOS [Concomitant]
     Active Substance: PIOGLITAZONE HYDROCHLORIDE
  3. GLIPIZIDE. [Concomitant]
     Active Substance: GLIPIZIDE

REACTIONS (3)
  - Cardiac fibrillation [Recovering/Resolving]
  - Blood creatinine abnormal [Recovering/Resolving]
  - Blood glucose fluctuation [Recovering/Resolving]

NARRATIVE: CASE EVENT DATE: 2015
